FAERS Safety Report 6368858-7 (Version None)
Quarter: 2009Q3

REPORT INFORMATION
  Report Type: 
  Country: None (occurrence: None)
  Receive Date: 20090916
  Receipt Date: 20090908
  Transmission Date: 20100115
  Serious: Yes (Other)
  Sender: FDA-Public Use
  Company Number: ADR20362009

PATIENT
  Age: 5 Day
  Sex: 0

DRUGS (1)
  1. LAMOTRIGINE [Suspect]
     Dosage: TRANSPLACENTAL, TRANSMAMMARY
     Route: 064

REACTIONS (5)
  - CONFUSIONAL STATE [None]
  - CONJUNCTIVITIS [None]
  - DRUG EXPOSURE VIA BREAST MILK [None]
  - JAUNDICE [None]
  - MATERNAL DRUGS AFFECTING FOETUS [None]
